FAERS Safety Report 23321438 (Version 1)
Quarter: 2023Q4

REPORT INFORMATION
  Report Type: Spontaneous
  Country: AU (occurrence: AU)
  Receive Date: 20231220
  Receipt Date: 20231220
  Transmission Date: 20240110
  Serious: Yes (Other)
  Sender: FDA-Public Use
  Company Number: AU-PFIZER INC-PV202300202925

PATIENT
  Sex: Female

DRUGS (6)
  1. XELJANZ [Suspect]
     Active Substance: TOFACITINIB CITRATE
     Indication: Colitis ulcerative
     Dosage: UNK
  2. HUMIRA [Suspect]
     Active Substance: ADALIMUMAB
  3. SIMPONI [Concomitant]
     Active Substance: GOLIMUMAB
  4. GOLIMUMAB [Concomitant]
     Active Substance: GOLIMUMAB
  5. PREDNISONE [Concomitant]
     Active Substance: PREDNISONE
     Dosage: UNK
     Dates: start: 202308
  6. TOFACITINIB CITRATE [Concomitant]
     Active Substance: TOFACITINIB CITRATE

REACTIONS (6)
  - Cholecystectomy [Not Recovered/Not Resolved]
  - Psoriasis [Recovered/Resolved]
  - Diarrhoea [Unknown]
  - Defaecation urgency [Unknown]
  - Drug level decreased [Unknown]
  - Colitis [Unknown]

NARRATIVE: CASE EVENT DATE: 20230401
